FAERS Safety Report 10003968 (Version 1)
Quarter: 2014Q1

REPORT INFORMATION
  Report Type: Spontaneous
  Country: US (occurrence: US)
  Receive Date: 20140312
  Receipt Date: 20140312
  Transmission Date: 20141002
  Serious: No
  Sender: FDA-Public Use
  Company Number: US-ABBVIE-13P-163-1143165-00

PATIENT
  Sex: 0

DRUGS (4)
  1. EPIVAL [Suspect]
     Indication: PRODUCT USED FOR UNKNOWN INDICATION
  2. TOPIMAX [Suspect]
     Indication: PRODUCT USED FOR UNKNOWN INDICATION
  3. KEPPRA [Suspect]
     Indication: PRODUCT USED FOR UNKNOWN INDICATION
  4. VIMPAT [Suspect]
     Indication: PRODUCT USED FOR UNKNOWN INDICATION

REACTIONS (1)
  - Feeling abnormal [Unknown]
